FAERS Safety Report 25847119 (Version 1)
Quarter: 2025Q3

REPORT INFORMATION
  Report Type: Report from Study
  Country: US (occurrence: US)
  Receive Date: 20250925
  Receipt Date: 20250925
  Transmission Date: 20251020
  Serious: No
  Sender: SUNOVION
  Company Number: US-SUMITOMO PHARMA SWITZERLAND GMBH-2025SPA012019

PATIENT
  Age: 70 Year
  Sex: Male

DRUGS (17)
  1. ORGOVYX [Suspect]
     Active Substance: RELUGOLIX
     Indication: Prostate cancer
     Route: 048
     Dates: start: 20230802, end: 20230802
  2. ORGOVYX [Suspect]
     Active Substance: RELUGOLIX
     Route: 048
  3. ALIGN [Concomitant]
     Active Substance: BIFIDOBACTERIUM LONGUM SUBSP. INFANTIS
  4. BENZONATATE [Concomitant]
     Active Substance: BENZONATATE
  5. CARVEDILOL [Concomitant]
     Active Substance: CARVEDILOL
  6. IBUPROFEN [Concomitant]
     Active Substance: IBUPROFEN
  7. DRAMAMINE [Concomitant]
     Active Substance: DIMENHYDRINATE
  8. ENTRESTO [Concomitant]
     Active Substance: SACUBITRIL\VALSARTAN
  9. FLONASE [Concomitant]
     Active Substance: FLUTICASONE PROPIONATE
  10. KRILL OIL [Concomitant]
     Active Substance: DIETARY SUPPLEMENT\KRILL OIL
  11. LEVOTHYROXINE SODIUM [Concomitant]
     Active Substance: LEVOTHYROXINE SODIUM
  12. MOBIC [Concomitant]
     Active Substance: MELOXICAM
  13. MINERALS\VITAMINS [Concomitant]
     Active Substance: MINERALS\VITAMINS
  14. Mucinex chesty cough [Concomitant]
  15. PAXLOVID [Concomitant]
     Active Substance: NIRMATRELVIR\RITONAVIR
  16. SPIRONOLACTONE [Concomitant]
     Active Substance: SPIRONOLACTONE
  17. WEGOVY [Concomitant]
     Active Substance: SEMAGLUTIDE

REACTIONS (2)
  - Hot flush [Unknown]
  - Constipation [Unknown]

NARRATIVE: CASE EVENT DATE: 20230801
